FAERS Safety Report 17892404 (Version 1)
Quarter: 2020Q2

REPORT INFORMATION
  Report Type: Spontaneous
  Country: US (occurrence: US)
  Receive Date: 20200612
  Receipt Date: 20200612
  Transmission Date: 20200714
  Serious: No
  Sender: FDA-Public Use
  Company Number: US-009507513-2006USA004233

PATIENT
  Age: 62 Year
  Sex: Female

DRUGS (8)
  1. PROVENTIL [Suspect]
     Active Substance: ALBUTEROL
     Indication: DYSPNOEA
     Dosage: REPORTED AS UP 6 PUFFS A DAY, IF NEEDED(6 DOSAGE FORM, PRN)
     Dates: start: 1980
  2. PROVENTIL [Suspect]
     Active Substance: ALBUTEROL
     Dosage: REPORTED AS UP 6 PUFFS A DAY, IF NEEDED(6 DOSAGE FORM, PRN)
  3. PROVENTIL [Suspect]
     Active Substance: ALBUTEROL
     Dosage: REPORTED AS UP 6 PUFFS A DAY, IF NEEDED(6 DOSAGE FORM, PRN)
  4. PROVENTIL [Suspect]
     Active Substance: ALBUTEROL
     Dosage: REPORTED AS UP 6 PUFFS A DAY, IF NEEDED(6 DOSAGE FORM, PRN)
  5. PROVENTIL [Suspect]
     Active Substance: ALBUTEROL
     Dosage: REPORTED AS UP 6 PUFFS A DAY, IF NEEDED(6 DOSAGE FORM, PRN)
  6. FEXOFENADINE HYDROCHLORIDE. [Concomitant]
     Active Substance: FEXOFENADINE HYDROCHLORIDE
  7. PROVENTIL [Suspect]
     Active Substance: ALBUTEROL
     Dosage: REPORTED AS UP 6 PUFFS A DAY, IF NEEDED(6 DOSAGE FORM, PRN)
  8. SYMBICORT [Concomitant]
     Active Substance: BUDESONIDE\FORMOTEROL FUMARATE DIHYDRATE

REACTIONS (4)
  - Underdose [Unknown]
  - Product dose omission [Unknown]
  - Product quality issue [Unknown]
  - Poor quality device used [Unknown]

NARRATIVE: CASE EVENT DATE: 201906
